FAERS Safety Report 18002179 (Version 1)
Quarter: 2020Q3

REPORT INFORMATION
  Report Type: Spontaneous
  Country: TN (occurrence: TN)
  Receive Date: 20200710
  Receipt Date: 20200710
  Transmission Date: 20201103
  Serious: Yes (Hospitalization, Other)
  Sender: FDA-Public Use
  Company Number: TN-QUAGEN-2020QUALIT00054

PATIENT

DRUGS (2)
  1. PROMETHAZINE HYDROCHLORIDE TABLETS, 12.5 MG [Suspect]
     Active Substance: PROMETHAZINE HYDROCHLORIDE
     Indication: SUICIDE ATTEMPT
     Route: 065
  2. LANATE [Suspect]
     Active Substance: AMMONIUM LACTATE
     Indication: SUICIDE ATTEMPT
     Route: 065

REACTIONS (4)
  - Cardiac arrest [Unknown]
  - Toxicity to various agents [Unknown]
  - Intentional product misuse [Unknown]
  - Ventricular tachycardia [Unknown]
